FAERS Safety Report 8756304 (Version 1)
Quarter: 2012Q4

REPORT INFORMATION
  Report Type: 
  Country: US (occurrence: US)
  Receive Date: 20120828
  Receipt Date: 20120828
  Transmission Date: 20130627
  Serious: No
  Sender: FDA-Public Use
  Company Number: US-B.I. PHARMACEUTICALS,INC./RIDGEFIELD-2012-BP-20573BP

PATIENT
  Sex: Female

DRUGS (5)
  1. SPIRIVA [Suspect]
     Indication: CHRONIC OBSTRUCTIVE PULMONARY DISEASE
     Dosage: 18 mcg
     Route: 055
     Dates: start: 201207
  2. POTASSIUM [Concomitant]
     Indication: CARDIAC DISORDER
  3. WATER PILL [Concomitant]
  4. HEARTBURN PILL [Concomitant]
     Indication: DYSPEPSIA
  5. PROAIR [Concomitant]
     Indication: ASTHMA

REACTIONS (2)
  - Headache [Not Recovered/Not Resolved]
  - Dyspnoea [Not Recovered/Not Resolved]
